FAERS Safety Report 10081570 (Version 1)
Quarter: 2014Q2

REPORT INFORMATION
  Report Type: Spontaneous
  Country: US (occurrence: US)
  Receive Date: 20140416
  Receipt Date: 20140416
  Transmission Date: 20141212
  Serious: No
  Sender: FDA-Public Use
  Company Number: US-PFIZER INC-2014103713

PATIENT
  Age: 73 Year
  Sex: Male
  Weight: 81.63 kg

DRUGS (7)
  1. AZOR [Suspect]
     Indication: HYPERTENSION
     Dosage: 1 DF, DAILY (5/20 MG DAILY)
     Route: 048
     Dates: end: 20140401
  2. CELEBREX [Interacting]
     Indication: PAIN
     Dosage: UNK, PRN
     Route: 048
     Dates: start: 201403
  3. OXYCODONE HYDROCHLORIDE [Interacting]
     Indication: PAIN
     Dosage: UNK, PRN
     Route: 048
     Dates: start: 201403
  4. ASPIRIN [Interacting]
     Indication: PAIN
     Dosage: 325 MG, 1X/DAY
     Route: 048
     Dates: start: 201403
  5. LIPITOR [Concomitant]
     Indication: BLOOD CHOLESTEROL INCREASED
     Dosage: UNK
     Dates: end: 2014
  6. TOPROL [Concomitant]
     Dosage: UNK
  7. DEXILANT [Concomitant]
     Dosage: UNK

REACTIONS (6)
  - Drug interaction [Unknown]
  - Insomnia [Not Recovered/Not Resolved]
  - Feeling abnormal [Not Recovered/Not Resolved]
  - Dizziness [Not Recovered/Not Resolved]
  - Hypotension [Not Recovered/Not Resolved]
  - Pollakiuria [Not Recovered/Not Resolved]
